FAERS Safety Report 6628880-X (Version None)
Quarter: 2010Q1

REPORT INFORMATION
  Report Type: 
  Country: None (occurrence: None)
  Receive Date: 20100311
  Receipt Date: 20100303
  Transmission Date: 20100710
  Serious: Yes (Hospitalization, Other)
  Sender: FDA-Public Use
  Company Number: GXKR2010DE02582

PATIENT
  Age: 14 Year
  Sex: Female

DRUGS (7)
  1. DEXAMETHASONE (NGX) [Suspect]
     Indication: ACUTE LYMPHOCYTIC LEUKAEMIA
     Dosage: 10 MG/M2/DAY
     Route: 065
  2. METHOTREXATE [Suspect]
     Indication: ACUTE LYMPHOCYTIC LEUKAEMIA
     Dosage: 5 G/M2 EVERY 14 DAYS
     Route: 065
  3. METHOTREXATE [Suspect]
     Indication: PROPHYLAXIS
     Dosage: 1 G/M2 EVERY 14 DAYS IN 4 CYCLES
     Route: 065
  4. METHOTREXATE [Suspect]
     Dosage: 12 MG, 3 TIMES
     Route: 037
  5. VINCRISTINE (NGX) [Suspect]
     Indication: ACUTE LYMPHOCYTIC LEUKAEMIA
     Route: 065
  6. CHEMOTHERAPEUTICS NOS [Suspect]
     Indication: ACUTE LYMPHOCYTIC LEUKAEMIA
     Route: 065
  7. FLUCONAZOLE [Concomitant]
     Indication: ANTIFUNGAL PROPHYLAXIS
     Dosage: 4 MG/KG, QD (200 MG/DAY)
     Route: 065

REACTIONS (20)
  - ABASIA [None]
  - ABDOMINAL PAIN [None]
  - ANTITHROMBIN III DECREASED [None]
  - ASPERGILLOSIS [None]
  - CHOLESTASIS [None]
  - FEBRILE NEUTROPENIA [None]
  - FUNGAL INFECTION [None]
  - HEPATIC ENZYME INCREASED [None]
  - HEPATIC FUNCTION ABNORMAL [None]
  - HYPOCOAGULABLE STATE [None]
  - LIVER DISORDER [None]
  - LUNG INFILTRATION [None]
  - LUNG LOBECTOMY [None]
  - MUCOSAL INFLAMMATION [None]
  - MYOPATHY [None]
  - NEUROPATHY PERIPHERAL [None]
  - PNEUMONIA [None]
  - RENAL ABSCESS [None]
  - RESPIRATORY DISORDER [None]
  - SEPTIC SHOCK [None]
